FAERS Safety Report 20095760 (Version 1)
Quarter: 2021Q4

REPORT INFORMATION
  Report Type: Spontaneous
  Country: JP (occurrence: JP)
  Receive Date: 20211122
  Receipt Date: 20211122
  Transmission Date: 20220303
  Serious: Yes (Other)
  Sender: FDA-Public Use
  Company Number: JP-TAKEDA-2021TJP101928

PATIENT
  Age: 8 Decade
  Sex: Male

DRUGS (1)
  1. VECTIBIX [Suspect]
     Active Substance: PANITUMUMAB
     Indication: Colon cancer
     Dosage: 6.0 MILLIGRAM/KILOGRAM
     Route: 042
     Dates: start: 20210802

REACTIONS (3)
  - Metastases to peritoneum [Recovered/Resolved]
  - Colon cancer [Unknown]
  - Disease progression [Unknown]
